FAERS Safety Report 8167063-1 (Version None)
Quarter: 2012Q1

REPORT INFORMATION
  Report Type: 
  Country: None (occurrence: None)
  Receive Date: 20120227
  Receipt Date: 20120213
  Transmission Date: 20120608
  Serious: Yes (Hospitalization)
  Sender: FDA-Public Use
  Company Number: GB-JNJFOC-20120207003

PATIENT
  Sex: Female

DRUGS (5)
  1. ZYTIGA [Suspect]
     Route: 048
  2. RIFAMPICIN [Suspect]
     Indication: TUBERCULOSIS
     Route: 048
     Dates: start: 20120127, end: 20120129
  3. ETHAMBUTOL HYDROCHLORIDE [Suspect]
     Indication: TUBERCULOSIS
     Route: 048
     Dates: start: 20120127, end: 20120129
  4. ZYTIGA [Suspect]
     Indication: BREAST CANCER METASTATIC
     Dosage: CYCLE 1, DAY 1
     Route: 048
     Dates: start: 20111130, end: 20120202
  5. RIFAMPICIN [Suspect]
     Route: 048
     Dates: start: 20120207

REACTIONS (1)
  - REACTION TO DRUG EXCIPIENTS [None]
